FAERS Safety Report 9360075 (Version 2)
Quarter: 2013Q4

REPORT INFORMATION
  Report Type: Spontaneous
  Country: DK (occurrence: DK)
  Receive Date: 20130621
  Receipt Date: 20131226
  Transmission Date: 20140711
  Serious: Yes (Other)
  Sender: FDA-Public Use
  Company Number: DK-AMGEN-DNKSP2013041343

PATIENT
  Age: 71 Year
  Sex: Female

DRUGS (2)
  1. PROLIA [Suspect]
     Indication: OSTEOPOROSIS
     Dosage: 60 MG/ML
     Route: 065
     Dates: start: 2011
  2. PREDNISOLON                        /00016201/ [Concomitant]
     Indication: MYALGIA
     Dosage: UNK
     Route: 065
     Dates: start: 20091204

REACTIONS (1)
  - Osteonecrosis of jaw [Recovered/Resolved]
